FAERS Safety Report 9775658 (Version 1)
Quarter: 2013Q4

REPORT INFORMATION
  Report Type: Spontaneous
  Country: GB (occurrence: GB)
  Receive Date: 20131220
  Receipt Date: 20131220
  Transmission Date: 20140711
  Serious: Yes (Other)
  Sender: FDA-Public Use
  Company Number: GB-PFIZER INC-2013364044

PATIENT
  Age: 61 Year
  Sex: Female
  Weight: 91 kg

DRUGS (7)
  1. DICLOFENAC SODIUM [Suspect]
     Dosage: UNK
     Dates: start: 20131205
  2. NAPROXEN [Suspect]
     Dosage: UNK
     Dates: start: 20131126
  3. CETIRIZINE [Concomitant]
     Dosage: UNK
  4. ORAMORPH [Concomitant]
     Dosage: UNK
  5. PARACETAMOL [Concomitant]
     Dosage: UNK
  6. TRAMADOL [Concomitant]
     Dosage: UNK
  7. LANSOPRAZOLE [Concomitant]
     Dosage: UNK

REACTIONS (2)
  - Wheezing [Recovered/Resolved]
  - Dyspnoea [Recovered/Resolved]
